FAERS Safety Report 19908171 (Version 1)
Quarter: 2021Q4

REPORT INFORMATION
  Report Type: Spontaneous
  Country: US (occurrence: US)
  Receive Date: 20211001
  Receipt Date: 20211001
  Transmission Date: 20220303
  Serious: Yes (Hospitalization, Other)
  Sender: FDA-Public Use
  Company Number: US-MLMSERVICE-20210915-3108058-1

PATIENT
  Age: 31 Year
  Sex: Male

DRUGS (12)
  1. PHENYLEPHRINE [Suspect]
     Active Substance: PHENYLEPHRINE HYDROCHLORIDE
     Indication: Vasopressive therapy
  2. EPINEPHRINE [Suspect]
     Active Substance: EPINEPHRINE
     Indication: Hypotension
  3. NOREPINEPHRINE [Suspect]
     Active Substance: NOREPINEPHRINE
     Indication: Hypotension
  4. ARGATROBAN [Concomitant]
     Active Substance: ARGATROBAN
     Indication: Anticoagulant therapy
     Dosage: CONTINUOUS INFUSION
  5. MEPREDNISONE [Concomitant]
     Active Substance: MEPREDNISONE
     Indication: Acute respiratory distress syndrome
  6. ANAKINRA [Concomitant]
     Active Substance: ANAKINRA
     Indication: COVID-19 treatment
  7. AMIODARONE [Concomitant]
     Active Substance: AMIODARONE
     Indication: Atrial fibrillation
  8. CHLOROQUINE [Concomitant]
     Active Substance: CHLOROQUINE
     Indication: COVID-19 treatment
  9. AZITHROMYCIN ANHYDROUS [Concomitant]
     Active Substance: AZITHROMYCIN ANHYDROUS
     Indication: Evidence based treatment
  10. THIAMINE [Concomitant]
     Active Substance: THIAMINE
     Indication: COVID-19 treatment
  11. CEFTRIAXONE [Concomitant]
     Active Substance: CEFTRIAXONE
     Indication: Evidence based treatment
  12. ASCORBIC ACID/SODIUM ASCORBATE [Concomitant]
     Indication: COVID-19 treatment

REACTIONS (2)
  - Dry gangrene [Recovered/Resolved]
  - Extremity necrosis [Recovered/Resolved]
